FAERS Safety Report 11872013 (Version 2)
Quarter: 2016Q1

REPORT INFORMATION
  Report Type: Spontaneous
  Country: JP (occurrence: JP)
  Receive Date: 20151228
  Receipt Date: 20160108
  Transmission Date: 20160526
  Serious: Yes (Hospitalization)
  Sender: FDA-Public Use
  Company Number: JP-TAKEDA-2015TUS018732

PATIENT
  Age: 76 Year
  Sex: Female
  Weight: 65.4 kg

DRUGS (9)
  1. FEBURIC [Suspect]
     Active Substance: FEBUXOSTAT
     Indication: HYPERURICAEMIA
     Dosage: 5 MG, QD
     Route: 048
     Dates: start: 20151113, end: 20151211
  2. ALOSENN [Concomitant]
     Active Substance: SENNA LEAF
     Indication: CONSTIPATION
     Dosage: 1 G, QD
     Route: 048
     Dates: start: 20130923
  3. PLAVIX [Concomitant]
     Active Substance: CLOPIDOGREL BISULFATE
     Indication: PRODUCT USED FOR UNKNOWN INDICATION
     Dosage: 75 MG, QD
     Route: 048
     Dates: start: 20150904
  4. LASIX [Concomitant]
     Active Substance: FUROSEMIDE
     Indication: CHRONIC KIDNEY DISEASE
     Dosage: 20 MG, QD
     Route: 048
     Dates: start: 20150410
  5. PURSENNID [Concomitant]
     Active Substance: SENNOSIDES A AND B
     Indication: CONSTIPATION
     Dosage: 12 MG, 1/WEEK
     Route: 048
     Dates: start: 20090330
  6. XELODA [Concomitant]
     Active Substance: CAPECITABINE
     Indication: RECTAL CANCER METASTATIC
     Dosage: 300 MG, QD
     Route: 048
     Dates: start: 20151113, end: 20151126
  7. SOLANAX [Concomitant]
     Active Substance: ALPRAZOLAM
     Indication: INSOMNIA
     Dosage: 0.4 MG, QD
     Route: 048
     Dates: start: 20140428
  8. NIFEDIPINE CR [Concomitant]
     Active Substance: NIFEDIPINE
     Indication: HYPERTENSION
     Dosage: 20 MG, BID
     Route: 048
     Dates: start: 20150410
  9. MYSLEE [Concomitant]
     Active Substance: ZOLPIDEM TARTRATE
     Indication: INSOMNIA
     Dosage: 10 MG, QD
     Route: 048
     Dates: start: 20090319

REACTIONS (1)
  - Drug eruption [Recovered/Resolved]

NARRATIVE: CASE EVENT DATE: 201511
